FAERS Safety Report 15800368 (Version 2)
Quarter: 2020Q2

REPORT INFORMATION
  Report Type: Spontaneous
  Country: DE (occurrence: DE)
  Receive Date: 20190108
  Receipt Date: 20200519
  Transmission Date: 20200713
  Serious: Yes (Hospitalization)
  Sender: FDA-Public Use
  Company Number: PHHY2019DE002215

PATIENT
  Age: 70 Year
  Sex: Male
  Weight: 95 kg

DRUGS (45)
  1. DEXAMETHASONE. [Concomitant]
     Active Substance: DEXAMETHASONE
     Dosage: 8 MG, CYCLIC
     Route: 041
     Dates: start: 20190222, end: 20190222
  2. AMLODIPINE [Concomitant]
     Active Substance: AMLODIPINE BESYLATE
     Indication: HYPERTENSION
     Dosage: 10 MG, QD
     Route: 048
  3. DOXAZOSIN [Concomitant]
     Active Substance: DOXAZOSIN MESYLATE
     Indication: HYPERTENSION
     Dosage: 8 MG, QD
     Route: 048
  4. INSULIN [Concomitant]
     Active Substance: INSULIN NOS
     Indication: DIABETES MELLITUS
     Dosage: IU
     Route: 058
  5. ABRAXANE [Suspect]
     Active Substance: PACLITAXEL
     Indication: NON-SMALL CELL LUNG CANCER
     Dosage: 100 MILLIGRAM/SQ. METER
     Route: 041
     Dates: start: 20181106, end: 20181204
  6. FOSAPREPITANT [Concomitant]
     Active Substance: FOSAPREPITANT
     Dosage: 150 MG PER CYCLE
     Route: 041
     Dates: start: 20190103, end: 20190103
  7. FOSAPREPITANT [Concomitant]
     Active Substance: FOSAPREPITANT
     Dosage: 150 MG PER CYCLE
     Route: 041
     Dates: start: 20190222, end: 20190222
  8. GRANISETRON [Concomitant]
     Active Substance: GRANISETRON
     Dosage: 1 MG, QW (1 MILLIGRAM)
     Route: 041
     Dates: start: 20181204, end: 20181204
  9. ZOLPIDEM [Concomitant]
     Active Substance: ZOLPIDEM TARTRATE
     Indication: INITIAL INSOMNIA
     Dosage: 5 MG, QD
     Route: 048
  10. FOSAPREPITANT [Concomitant]
     Active Substance: FOSAPREPITANT
     Indication: PROPHYLAXIS
     Dosage: 150 MG, CYCLIC
     Route: 041
  11. GRANISETRON [Concomitant]
     Active Substance: GRANISETRON
     Dosage: 1 MG PER CYCLE
     Route: 041
     Dates: start: 20190103, end: 20190103
  12. GRANISETRON [Concomitant]
     Active Substance: GRANISETRON
     Dosage: 1 MG PER CYCLE
     Route: 041
     Dates: start: 20190228, end: 20190228
  13. DEXAMETHASONE. [Concomitant]
     Active Substance: DEXAMETHASONE
     Dosage: 8 MG, CYCLIC
     Route: 048
     Dates: start: 20190104, end: 20190104
  14. LONQUEX [Concomitant]
     Active Substance: LIPEGFILGRASTIM
     Dosage: 6 MG; PER CYCLE
     Route: 058
     Dates: start: 20190106, end: 20190106
  15. DEXAMETHASONE. [Concomitant]
     Active Substance: DEXAMETHASONE
     Dosage: 8 MG, CYCLIC
     Route: 048
     Dates: start: 20190223, end: 20190224
  16. AMILORETIK [Concomitant]
     Indication: HYPERTENSION
     Dosage: 2.5 MG, QD
     Route: 048
  17. FOSAPREPITANT [Concomitant]
     Active Substance: FOSAPREPITANT
     Dosage: 150 MG PER CYCLE
     Route: 041
     Dates: start: 20190131, end: 20190131
  18. GRANISETRON [Concomitant]
     Active Substance: GRANISETRON
     Indication: PROPHYLAXIS
     Dosage: 1 MG PER CYCLE
     Route: 041
  19. DEXAMETHASONE. [Concomitant]
     Active Substance: DEXAMETHASONE
     Dosage: 8 MG, CYCLIC
     Route: 041
     Dates: start: 20190103, end: 20190103
  20. RAMIPRIL. [Concomitant]
     Active Substance: RAMIPRIL
     Indication: HYPERTENSION
     Dosage: 10 MG, QD
     Route: 048
  21. SIMVASTATIN. [Concomitant]
     Active Substance: SIMVASTATIN
     Indication: HYPERTENSION
     Dosage: 10 MG, QD
     Route: 048
  22. LONQUEX [Concomitant]
     Active Substance: LIPEGFILGRASTIM
     Dosage: 4 MG; PER CYCLE
     Route: 058
     Dates: start: 20190201, end: 20190201
  23. CARBOPLATIN. [Suspect]
     Active Substance: CARBOPLATIN
     Indication: NON-SMALL CELL LUNG CANCER
     Dosage: 5 MG MIN/ML
     Route: 041
     Dates: start: 20181106, end: 20190222
  24. GRANISETRON [Concomitant]
     Active Substance: GRANISETRON
     Dosage: 1 MG PER CYCLE
     Route: 041
     Dates: start: 20190131, end: 20190131
  25. GRANISETRON [Concomitant]
     Active Substance: GRANISETRON
     Dosage: 1 MG PER CYCLE
     Route: 041
     Dates: start: 20190222, end: 20190222
  26. GRANISETRON [Concomitant]
     Active Substance: GRANISETRON
     Dosage: 1 MG PER CYCLE
     Route: 041
     Dates: start: 20190307, end: 20190307
  27. DEXAMETHASONE. [Concomitant]
     Active Substance: DEXAMETHASONE
     Dosage: 8 MG, CYCLIC
     Route: 041
     Dates: start: 20181106, end: 20181106
  28. DEXAMETHASONE. [Concomitant]
     Active Substance: DEXAMETHASONE
     Dosage: 8 MG, CYCLIC
     Route: 041
     Dates: start: 20181204, end: 20190204
  29. DEXAMETHASONE. [Concomitant]
     Active Substance: DEXAMETHASONE
     Dosage: 8 MG, CYCLIC
     Route: 048
     Dates: start: 20181205, end: 20181207
  30. APIDRA [Concomitant]
     Active Substance: INSULIN GLULISINE
     Indication: DIABETES MELLITUS
     Dosage: 60 IU (INTERNATIONAL UNIT)
     Route: 058
  31. LEVEMIR [Concomitant]
     Active Substance: INSULIN DETEMIR
     Indication: DIABETES MELLITUS
     Dosage: 25 IU (INTERNATIONAL UNIT)
     Route: 058
  32. NOVALGIN [Concomitant]
     Indication: BONE PAIN
     Dosage: 1500 MG, CYCLIC
     Route: 048
     Dates: start: 20190223, end: 20190226
  33. ABRAXANE [Suspect]
     Active Substance: PACLITAXEL
     Dosage: 100 MILLIGRAM/SQ. METER
     Route: 041
     Dates: start: 20181120, end: 20190307
  34. DEXAMETHASONE. [Concomitant]
     Active Substance: DEXAMETHASONE
     Dosage: 8 MG, CYCLIC
     Route: 041
     Dates: start: 20190131, end: 20190131
  35. DEXAMETHASONE. [Concomitant]
     Active Substance: DEXAMETHASONE
     Dosage: 8 MG, CYCLIC
     Route: 048
     Dates: start: 20190201, end: 20190203
  36. ABRAXANE [Suspect]
     Active Substance: PACLITAXEL
     Dosage: UNK
     Route: 041
  37. FOSAPREPITANT [Concomitant]
     Active Substance: FOSAPREPITANT
     Dosage: 150 MG PER CYCLE
     Route: 041
     Dates: start: 20181106, end: 20181106
  38. GRANISETRON [Concomitant]
     Active Substance: GRANISETRON
     Dosage: 1 MG PER CYCLE
     Route: 041
     Dates: start: 20181106, end: 20181106
  39. GRANISETRON [Concomitant]
     Active Substance: GRANISETRON
     Dosage: 1 MG PER CYCLE
     Route: 041
     Dates: start: 20181218, end: 20181218
  40. DEXAMETHASONE. [Concomitant]
     Active Substance: DEXAMETHASONE
     Indication: PROPHYLAXIS
     Dosage: 8 MG, CYCLIC
     Route: 041
  41. DEXAMETHASONE. [Concomitant]
     Active Substance: DEXAMETHASONE
     Dosage: 8 MG, CYCLIC
     Route: 041
  42. INSULIN [Concomitant]
     Active Substance: INSULIN NOS
     Dosage: IU
     Route: 058
     Dates: start: 20181112
  43. LONQUEX [Concomitant]
     Active Substance: LIPEGFILGRASTIM
     Indication: PRODUCT USED FOR UNKNOWN INDICATION
     Dosage: 6 MG; PER CYCLE
     Route: 058
     Dates: start: 20181205, end: 20181205
  44. LONQUEX [Concomitant]
     Active Substance: LIPEGFILGRASTIM
     Dosage: 4 MG; PER CYCLE
     Route: 058
     Dates: start: 20190223, end: 20190223
  45. METOCLOPRAMIDE. [Concomitant]
     Active Substance: METOCLOPRAMIDE
     Indication: PROPHYLAXIS
     Route: 048
     Dates: start: 20190104, end: 20190108

REACTIONS (2)
  - General physical health deterioration [Recovered/Resolved]
  - Neutropenia [Recovered/Resolved]

NARRATIVE: CASE EVENT DATE: 20181127
